FAERS Safety Report 18104640 (Version 1)
Quarter: 2020Q3

REPORT INFORMATION
  Report Type: Spontaneous
  Country: PL (occurrence: PL)
  Receive Date: 20200803
  Receipt Date: 20200803
  Transmission Date: 20201103
  Serious: Yes (Hospitalization, Other)
  Sender: FDA-Public Use
  Company Number: PL-PFIZER INC-2020290632

PATIENT
  Age: 48 Year
  Sex: Male

DRUGS (2)
  1. AXITINIB [Suspect]
     Active Substance: AXITINIB
     Indication: RENAL CELL CARCINOMA STAGE IV
     Dosage: 5 MG, 2X/DAY (PALLIATIVE TREATMENT)
     Route: 048
     Dates: end: 2020
  2. AXITINIB [Suspect]
     Active Substance: AXITINIB
     Dosage: 5 MG, 2X/DAY (INTERRUPTED FOR 21 DAYS) (AXITINIB WAS RE?ADMINISTERED)
     Route: 048
     Dates: end: 2020

REACTIONS (3)
  - Pulmonary embolism [Unknown]
  - Scrotal ulcer [Unknown]
  - Diarrhoea [Unknown]

NARRATIVE: CASE EVENT DATE: 201910
